FAERS Safety Report 7555641-X (Version None)
Quarter: 2011Q2

REPORT INFORMATION
  Report Type: 
  Country: None (occurrence: None)
  Receive Date: 20110617
  Receipt Date: 20080117
  Transmission Date: 20111010
  Serious: Yes (Death, Hospitalization)
  Sender: FDA-Public Use
  Company Number: PHHY2008CA00499

PATIENT
  Sex: Male

DRUGS (4)
  1. SANDOSTATIN [Suspect]
     Indication: CARCINOID SYNDROME
     Dosage: 30 MG, TIW
     Route: 030
     Dates: start: 20070126, end: 20071211
  2. PERCOCET [Concomitant]
  3. SCOPOLAMINE [Concomitant]
     Dosage: 10 MG, PRN
  4. RAMIPRIL [Concomitant]
     Dosage: 10 MG, QD
     Route: 048

REACTIONS (3)
  - INTESTINAL PERFORATION [None]
  - ABDOMINAL PAIN [None]
  - DEATH [None]
